FAERS Safety Report 7251221-4 (Version None)
Quarter: 2011Q1

REPORT INFORMATION
  Report Type: 
  Country: None (occurrence: None)
  Receive Date: 20110105
  Receipt Date: 20101229
  Transmission Date: 20110831
  Serious: Yes (Hospitalization, Other)
  Sender: FDA-Public Use
  Company Number: 2010027100

PATIENT
  Sex: Female

DRUGS (12)
  1. REMERON (MIRTAZAPINE) [Concomitant]
  2. SYNTHROID [Concomitant]
  3. HYDROCORTISONE (HYDROCORTISONE) [Concomitant]
  4. MESTINON [Concomitant]
  5. DIAZEPAM (DIAZEPAM) [Concomitant]
  6. VITAMIN D [Concomitant]
  7. MG OX (MAGNESIUM OXIDE) [Concomitant]
  8. FENTANYL PATCH 	(FENTANYL) [Concomitant]
  9. COREG [Concomitant]
  10. AMBIEN (ZOLPIDEM TARTRATE) [Concomitant]
  11. CLONAZEPAM [Concomitant]
  12. PRIVIGEN [Suspect]
     Indication: IMMUNODEFICIENCY
     Dosage: (10 G QD, OVER 4-5 HOURS INTRAVENOUS (NOT OTHERWISE SPECIFIED))
     Route: 042
     Dates: start: 20101105, end: 20101105

REACTIONS (4)
  - CHILLS [None]
  - INFUSION RELATED REACTION [None]
  - HYPOTENSION [None]
  - ESCHERICHIA TEST POSITIVE [None]
